FAERS Safety Report 9551008 (Version 1)
Quarter: 2013Q3

REPORT INFORMATION
  Report Type: Spontaneous
  Country: US (occurrence: US)
  Receive Date: 20130924
  Receipt Date: 20130924
  Transmission Date: 20140515
  Serious: No
  Sender: FDA-Public Use
  Company Number: US-SANOFI-AVENTIS-2013SA052011

PATIENT
  Age: 36 Year
  Sex: Male

DRUGS (1)
  1. AUBAGIO [Suspect]
     Route: 048

REACTIONS (4)
  - Motor dysfunction [Not Recovered/Not Resolved]
  - Condition aggravated [Not Recovered/Not Resolved]
  - Hypogeusia [Not Recovered/Not Resolved]
  - Drug dose omission [Unknown]
